FAERS Safety Report 6495179-4 (Version None)
Quarter: 2009Q4

REPORT INFORMATION
  Report Type: 
  Country: None (occurrence: None)
  Receive Date: 20091214
  Receipt Date: 20090511
  Transmission Date: 20100525
  Serious: No
  Sender: FDA-Public Use
  Company Number: US-BRISTOL-MYERS SQUIBB COMPANY-14617849

PATIENT
  Age: 56 Year
  Sex: Female
  Weight: 75 kg

DRUGS (4)
  1. ABILIFY [Suspect]
     Indication: DEPRESSION
     Dosage: DOSE DECREASED TO 2MG AND WILL BE TAKING FROM 12MAY2009.
  2. DULOXETINE HYDROCHLORIDE [Suspect]
  3. SYNTHROID [Concomitant]
  4. VITAMINS [Concomitant]

REACTIONS (2)
  - MASKED FACIES [None]
  - NERVOUSNESS [None]
